FAERS Safety Report 5767611-2 (Version None)
Quarter: 2008Q2

REPORT INFORMATION
  Report Type: 
  Country: None (occurrence: None)
  Receive Date: 20080601
  Receipt Date: 20080229
  Transmission Date: 20081010
  Serious: No
  Sender: FDA-Public Use
  Company Number: US200803000018

PATIENT
  Sex: Male

DRUGS (3)
  1. BYETTA [Suspect]
     Dosage: 5 UG, SUBCUTANEOUS ; 10 UG, SUBCUTANEOUS ; 7.5 MG, SUBCUTANEOUS
     Route: 058
     Dates: start: 20070901, end: 20071001
  2. BYETTA [Suspect]
     Dosage: 5 UG, SUBCUTANEOUS ; 10 UG, SUBCUTANEOUS ; 7.5 MG, SUBCUTANEOUS
     Route: 058
     Dates: start: 20071001, end: 20071101
  3. BYETTA [Suspect]
     Dosage: 5 UG, SUBCUTANEOUS ; 10 UG, SUBCUTANEOUS ; 7.5 MG, SUBCUTANEOUS
     Route: 058
     Dates: start: 20071101

REACTIONS (2)
  - ADVERSE EVENT [None]
  - DRUG ADMINISTRATION ERROR [None]
